FAERS Safety Report 12205267 (Version 7)
Quarter: 2018Q2

REPORT INFORMATION
  Report Type: Spontaneous
  Country: GR (occurrence: GR)
  Receive Date: 20160323
  Receipt Date: 20180618
  Transmission Date: 20180711
  Serious: Yes (Hospitalization, Other)
  Sender: FDA-Public Use
  Company Number: GR-PFIZER INC-2016168926

PATIENT
  Age: 72 Year

DRUGS (5)
  1. CARVEDILOL. [Suspect]
     Active Substance: CARVEDILOL
     Dosage: 6.25 MG, TWICE A DAY
     Route: 065
  2. AMLODIPINE/OLMESARTAN MEDOXOMIL [Suspect]
     Active Substance: AMLODIPINE\OLMESARTAN
     Dosage: 10 MG AMLODIPINE + 20 MG OLMESARTAN, BID
     Route: 065
  3. DICLOFENAC [Suspect]
     Active Substance: DICLOFENAC
     Indication: CARDIAC FAILURE
     Dosage: ONCE EVERY TWO DAYS
     Route: 065
  4. AMILORIDE HYDROCHLORIDE/FUROSEMIDE [Suspect]
     Active Substance: AMILORIDE HYDROCHLORIDE\FUROSEMIDE
     Dosage: 1 DF, 2X/DAY (40+5) MG)
  5. IRBESARTAN. [Suspect]
     Active Substance: IRBESARTAN
     Indication: CARDIAC FAILURE
     Dosage: 300 MG, ONCE A DAY
     Route: 065

REACTIONS (12)
  - Glomerular filtration rate decreased [None]
  - Blood urea increased [None]
  - Hyperkalaemia [Recovered/Resolved]
  - Renal impairment [Recovered/Resolved]
  - Product use issue [Recovered/Resolved]
  - Hyponatraemia [Recovered/Resolved]
  - Orthostatic hypotension [Recovered/Resolved]
  - Muscular weakness [Recovered/Resolved]
  - Blood creatinine increased [None]
  - Oliguria [None]
  - Hypovolaemia [None]
  - Electrocardiogram T wave abnormal [None]
